FAERS Safety Report 8619315 (Version 3)
Quarter: 2012Q4

REPORT INFORMATION
  Report Type: 
  Country: FR (occurrence: FR)
  Receive Date: 20120618
  Receipt Date: 20121102
  Transmission Date: 20130627
  Serious: Yes (Hospitalization, Other)
  Sender: FDA-Public Use
  Company Number: FR-ELI_LILLY_AND_COMPANY-FR201206002476

PATIENT
  Age: 52 Year
  Sex: Female
  Weight: 50 kg

DRUGS (13)
  1. ALIMTA [Suspect]
     Indication: BRONCHIAL CARCINOMA
     Dosage: 750 mg, UNK
     Route: 042
     Dates: start: 20120515
  2. ALIMTA [Suspect]
     Dosage: 750 mg, UNK
     Route: 042
     Dates: start: 20120607
  3. CISPLATIN [Concomitant]
     Indication: BRONCHIAL CARCINOMA
     Dosage: 110 mg, UNK
     Dates: start: 20120516
  4. SOLU-PRED [Concomitant]
     Dosage: 20 mg, UNK
  5. ANAUSIN [Concomitant]
  6. INEXIUM [Concomitant]
     Dosage: 40 mg, UNK
  7. IMOVANE [Concomitant]
  8. SPECIAFOLDINE [Concomitant]
     Dosage: 0.4 mg, UNK
  9. XANAX [Concomitant]
     Dosage: 75 mg, bid
  10. TRAMADOL [Concomitant]
     Dosage: 50 mg, UNK
  11. LODOZ [Concomitant]
  12. ZOPHREN [Concomitant]
     Indication: ANTIEMETIC SUPPORTIVE CARE
     Dosage: 8 mg, bid
     Dates: start: 20120516, end: 20120521
  13. EMEND [Concomitant]
     Indication: ANTIEMETIC SUPPORTIVE CARE
     Dosage: 80 mg, qd
     Dates: start: 20120516, end: 20120518

REACTIONS (1)
  - Peripheral ischaemia [Recovered/Resolved with Sequelae]
